FAERS Safety Report 6581363-8 (Version None)
Quarter: 2010Q1

REPORT INFORMATION
  Report Type: 
  Country: None (occurrence: None)
  Receive Date: 20100215
  Receipt Date: 20100202
  Transmission Date: 20100710
  Serious: Yes (Other)
  Sender: FDA-Public Use
  Company Number: US-JNJFOC-20100201828

PATIENT
  Age: 49 Year
  Sex: Male

DRUGS (3)
  1. INVEGA [Suspect]
     Indication: IMPULSE-CONTROL DISORDER
     Route: 048
  2. INVEGA [Suspect]
     Indication: ASPERGER'S DISORDER
     Route: 048
  3. ZOLOFT [Concomitant]
     Route: 048

REACTIONS (1)
  - BLOOD GLUCOSE INCREASED [None]
